FAERS Safety Report 8310559-X (Version None)
Quarter: 2012Q2

REPORT INFORMATION
  Report Type: 
  Country: None (occurrence: None)
  Receive Date: 20120425
  Receipt Date: 20120425
  Transmission Date: 20120825
  Serious: Yes (Hospitalization)
  Sender: FDA-Public Use
  Company Number: GB-TEVA-228520ISR

PATIENT
  Sex: Male

DRUGS (17)
  1. GOSERELIN [Concomitant]
     Indication: PROSTATE CANCER
     Route: 042
     Dates: start: 20081218
  2. LEVOMEPROMAZINE [Concomitant]
     Indication: PROPHYLAXIS OF NAUSEA AND VOMITING
     Route: 048
     Dates: start: 20081201
  3. POTASSIUM CHLORIDE [Concomitant]
     Indication: PROPHYLAXIS
     Route: 048
     Dates: start: 20081208, end: 20081211
  4. LEVOMEPROMAZINE [Concomitant]
  5. FERROUS FUMARATE [Concomitant]
     Indication: PROPHYLAXIS
     Dosage: 322 MILLIGRAM;
     Route: 048
     Dates: start: 20080313
  6. ZOLEDRONIC [Concomitant]
     Indication: CANCER PAIN
     Route: 042
     Dates: start: 20070605
  7. DEXAMETHASONE [Concomitant]
     Indication: CANCER PAIN
     Dosage: 1 MILLIGRAM;
     Dates: start: 20081218
  8. PREDNISOLONE [Suspect]
     Indication: PROSTATE CANCER
     Dosage: 10 MILLIGRAM;
     Route: 048
     Dates: start: 20081218, end: 20090204
  9. LANSOPRAZOLE [Concomitant]
     Indication: PROPHYLAXIS
     Route: 048
     Dates: start: 20090129
  10. LACTULOSE [Concomitant]
     Indication: CONSTIPATION
     Dosage: 20 ML;
     Route: 048
     Dates: start: 20090129
  11. BUPRENORPHINE [Concomitant]
     Route: 062
     Dates: start: 20090129
  12. PANADEINE CO [Concomitant]
     Indication: CANCER PAIN
     Route: 048
     Dates: start: 20081201
  13. ABIRATERONE  ACETATEB OR PLACEBO [Suspect]
     Indication: PROSTATE CANCER
     Dosage: 1000 MILLIGRAM;
     Route: 048
     Dates: start: 20081218, end: 20090129
  14. DEXAMETHASONE [Concomitant]
     Route: 048
     Dates: start: 20090204, end: 20090201
  15. ACETYLSALICYLIC ACID SRT [Concomitant]
     Indication: PROPHYLAXIS
     Route: 048
  16. CALCIUM CARBONATE [Concomitant]
     Indication: SUPPLEMENTATION THERAPY
     Dosage: 40 MILLIGRAM;
     Route: 048
     Dates: start: 20070601
  17. ENOXAPARIN SODIUM [Concomitant]
     Indication: ANTICOAGULANT THERAPY
     Dosage: 80 MILLIGRAM;
     Route: 058
     Dates: start: 20080801

REACTIONS (3)
  - HEPATITIS [None]
  - RECTAL HAEMORRHAGE [None]
  - INFECTION [None]
